FAERS Safety Report 4412911-1 (Version None)
Quarter: 2004Q3

REPORT INFORMATION
  Report Type: 
  Country: None (occurrence: None)
  Receive Date: 20040730
  Receipt Date: 20040712
  Transmission Date: 20050211
  Serious: Yes (Other)
  Sender: FDA-Public Use
  Company Number: 2004UW14359

PATIENT
  Sex: Female
  Weight: 57.6068 kg

DRUGS (2)
  1. CRESTOR [Suspect]
     Indication: BLOOD CHOLESTEROL INCREASED
     Dates: start: 20040601, end: 20040705
  2. CRESTOR [Suspect]
     Indication: BLOOD TRIGLYCERIDES INCREASED
     Dates: start: 20040601, end: 20040705

REACTIONS (2)
  - UNEXPECTED THERAPEUTIC DRUG EFFECT [None]
  - VISUAL DISTURBANCE [None]
